FAERS Safety Report 5624970-9 (Version None)
Quarter: 2008Q1

REPORT INFORMATION
  Report Type: 
  Country: None (occurrence: None)
  Receive Date: 20080213
  Receipt Date: 20080208
  Transmission Date: 20080703
  Serious: Yes (Hospitalization)
  Sender: FDA-Public Use
  Company Number: US-ALLERGAN-0801540US

PATIENT
  Sex: Male

DRUGS (2)
  1. BOTOX COSMETIC [Suspect]
     Indication: SKIN WRINKLING
     Dosage: 52 UNITS, SINGLE
     Route: 030
     Dates: start: 20080201, end: 20080201
  2. JUVEDERM [Suspect]
     Indication: SKIN WRINKLING
     Dosage: 1 ML, UNK
     Dates: start: 20080201, end: 20080201

REACTIONS (3)
  - ANXIETY [None]
  - DYSPNOEA [None]
  - MUSCULAR WEAKNESS [None]
